FAERS Safety Report 9782404 (Version 1)
Quarter: 2013Q4

REPORT INFORMATION
  Report Type: Report from Study
  Country: IL (occurrence: IL)
  Receive Date: 20131226
  Receipt Date: 20131226
  Transmission Date: 20140711
  Serious: Yes (Hospitalization)
  Sender: FDA-Public Use
  Company Number: PHHY2013IL151095

PATIENT
  Age: 66 Year
  Sex: Male

DRUGS (3)
  1. SANDOSTATIN LAR [Suspect]
     Indication: PANCREATIC NEUROENDOCRINE TUMOUR
     Dosage: 60 MG, 1Q4 W
     Route: 030
     Dates: start: 20091122
  2. SANDOSTATIN LAR [Suspect]
     Dosage: 60 MG, 1Q4 W
     Route: 030
     Dates: start: 20131121
  3. IRON [Concomitant]
     Dosage: UNK UKN, UNK

REACTIONS (2)
  - Hypophosphataemia [Recovering/Resolving]
  - Hypoglycaemia [Recovering/Resolving]
